FAERS Safety Report 19824123 (Version 1)
Quarter: 2021Q3

REPORT INFORMATION
  Report Type: Report from Study
  Country: US (occurrence: US)
  Receive Date: 20210913
  Receipt Date: 20210913
  Transmission Date: 20211014
  Serious: Yes (Other)
  Sender: FDA-Public Use
  Company Number: US-TAKEDA-US201904766

PATIENT
  Age: 24 Year
  Sex: Female

DRUGS (3)
  1. LANADELUMAB [Suspect]
     Active Substance: LANADELUMAB
     Indication: IMMUNE SYSTEM DISORDER
     Dosage: 300 MILLIGRAM, Q2WEEKS
     Route: 058
     Dates: start: 20181009
  2. LANADELUMAB [Suspect]
     Active Substance: LANADELUMAB
     Dosage: 300 MILLIGRAM, PRN
     Route: 058
     Dates: start: 201902
  3. LANADELUMAB [Suspect]
     Active Substance: LANADELUMAB
     Dosage: 200 MILLIGRAM,OTHER
     Route: 058
     Dates: start: 201910

REACTIONS (4)
  - Illness [Unknown]
  - Product availability issue [Unknown]
  - Viral infection [Unknown]
  - Hereditary angioedema [Recovered/Resolved]

NARRATIVE: CASE EVENT DATE: 20191121
